FAERS Safety Report 7264765-6 (Version None)
Quarter: 2011Q1

REPORT INFORMATION
  Report Type: 
  Country: None (occurrence: None)
  Receive Date: 20110131
  Receipt Date: 20110117
  Transmission Date: 20110831
  Serious: Yes (Hospitalization)
  Sender: FDA-Public Use
  Company Number: GB-RANBAXY-2010RR-33796

PATIENT
  Age: 73 Year
  Sex: Female

DRUGS (8)
  1. CIMETIDINE [Concomitant]
     Dosage: 800 MG, TID
     Route: 065
     Dates: start: 20081201
  2. ESOMEPRAZOLE [Suspect]
  3. LANSOPRAZOLE [Suspect]
     Indication: GASTROOESOPHAGEAL REFLUX DISEASE
     Dosage: UNK
     Dates: start: 19940101, end: 19990101
  4. FUROSEMIDE [Concomitant]
     Indication: HYPERTENSION
     Dosage: UNK
     Dates: start: 20050101
  5. RANITIDINE [Concomitant]
     Route: 065
  6. BENDROFLUMETHIAZIDE [Concomitant]
     Indication: HYPERTENSION
     Dosage: 2.5 MG, QD
     Route: 065
     Dates: start: 20010101, end: 20050101
  7. OMEPRAZOLE [Suspect]
     Indication: GASTROOESOPHAGEAL REFLUX DISEASE
     Dosage: UNK
     Dates: start: 19990101
  8. PANTOPRAZOLE [Suspect]
     Dosage: 40 MG, QD

REACTIONS (14)
  - FALL [None]
  - HYPOCALCAEMIA [None]
  - RASH PRURITIC [None]
  - PARAESTHESIA [None]
  - BALANCE DISORDER [None]
  - ARTHRALGIA [None]
  - CIRCULATORY COLLAPSE [None]
  - ABDOMINAL PAIN [None]
  - MUSCLE SPASMS [None]
  - SYNCOPE [None]
  - ASTHENIA [None]
  - HYPOMAGNESAEMIA [None]
  - CHEST PAIN [None]
  - RASH [None]
